FAERS Safety Report 4486567-6 (Version None)
Quarter: 2004Q4

REPORT INFORMATION
  Report Type: 
  Country: None (occurrence: None)
  Receive Date: 20041026
  Receipt Date: 20041026
  Transmission Date: 20050328
  Serious: Yes (Hospitalization)
  Sender: FDA-Public Use
  Company Number: None

PATIENT
  Age: 79 Year
  Sex: Male
  Weight: 67.1324 kg

DRUGS (2)
  1. WARFARIN SODIUM [Suspect]
     Dosage: 5 + 7.5 MG ALTERNATING
     Dates: start: 20010101
  2. CLOPIDOGREL BISULFATE [Suspect]
     Dosage: 75 MG

REACTIONS (1)
  - UPPER GASTROINTESTINAL HAEMORRHAGE [None]
